FAERS Safety Report 9681076 (Version 2)
Quarter: 2013Q4

REPORT INFORMATION
  Report Type: Spontaneous
  Country: JP (occurrence: JP)
  Receive Date: 20131111
  Receipt Date: 20131205
  Transmission Date: 20140711
  Serious: Yes (Hospitalization, Other)
  Sender: FDA-Public Use
  Company Number: JP-SA-2013SA111668

PATIENT
  Age: 71 Year
  Sex: Male

DRUGS (7)
  1. AMARYL [Suspect]
     Indication: DIABETES MELLITUS
     Dosage: TABLET 1 MG; MORNING AND EVENING
     Route: 048
     Dates: end: 20130612
  2. CISPLATIN [Suspect]
     Indication: BLADDER CANCER
     Route: 065
     Dates: start: 20130603, end: 20130611
  3. ALOGLIPTIN BENZOATE [Interacting]
     Indication: DIABETES MELLITUS
     Dosage: DOSE: 6.25 MG/MIN., AFTER LUNCH
     Route: 065
     Dates: start: 20130612, end: 20130613
  4. BEZAFIBRATE [Concomitant]
     Indication: DYSLIPIDAEMIA
     Dates: end: 20130612
  5. BEZAFIBRATE [Concomitant]
     Indication: RENAL FAILURE CHRONIC
     Dates: end: 20130612
  6. GEMCITABINE [Concomitant]
     Indication: BLADDER CANCER
     Dates: start: 20130603
  7. VOGLIBOSE [Concomitant]
     Indication: DIABETES MELLITUS
     Dosage: AT 0.9 MG/MIN AFTER MEALS
     Dates: start: 20130612, end: 20130613

REACTIONS (5)
  - Hypoglycaemia [Recovered/Resolved]
  - Off label use [Unknown]
  - Drug interaction [Unknown]
  - Renal failure acute [Unknown]
  - Blood creatinine increased [Unknown]
